FAERS Safety Report 6277058-0 (Version None)
Quarter: 2009Q3

REPORT INFORMATION
  Report Type: 
  Country: None (occurrence: None)
  Receive Date: 20090722
  Receipt Date: 20081210
  Transmission Date: 20100115
  Serious: No
  Sender: FDA-Public Use
  Company Number: US-BRISTOL-MYERS SQUIBB COMPANY-14438501

PATIENT
  Age: 80 Year
  Sex: Female
  Weight: 56 kg

DRUGS (5)
  1. COUMADIN [Suspect]
     Indication: ATRIAL FIBRILLATION
     Dosage: ALSO TAKEN 7MG FOUR TIMES A WEEK; STOPPED THERAPY FOR 3 DAYS AND HAS BEEN TAKING 7MG DAILY.
     Dates: start: 20040101
  2. COUMADIN [Suspect]
     Indication: MITRAL VALVE PROLAPSE
     Dosage: ALSO TAKEN 7MG FOUR TIMES A WEEK; STOPPED THERAPY FOR 3 DAYS AND HAS BEEN TAKING 7MG DAILY.
     Dates: start: 20040101
  3. SYNTHROID [Concomitant]
  4. DILTIAZEM HCL [Concomitant]
  5. LORAZEPAM [Concomitant]

REACTIONS (1)
  - INTERNATIONAL NORMALISED RATIO FLUCTUATION [None]
